FAERS Safety Report 7531706-3 (Version None)
Quarter: 2011Q2

REPORT INFORMATION
  Report Type: 
  Country: None (occurrence: None)
  Receive Date: 20110608
  Receipt Date: 20110603
  Transmission Date: 20111010
  Serious: Yes (Life-Threatening, Hospitalization, Other)
  Sender: FDA-Public Use
  Company Number: US-ASTRAZENECA-2010SE42407

PATIENT
  Age: 60 Year
  Sex: Female

DRUGS (6)
  1. LITHIUM CARBONATE [Concomitant]
  2. PROZAC [Concomitant]
  3. SEROQUEL XR [Suspect]
     Indication: DEPRESSION
     Dosage: DOSE FREQUENCY-BID, TOTAL DAILY DOSE-200 MG
     Route: 048
  4. SEROQUEL XR [Suspect]
     Route: 048
  5. ATIVAN [Concomitant]
  6. TRILAFON [Concomitant]

REACTIONS (7)
  - BONE DISORDER [None]
  - DRUG DOSE OMISSION [None]
  - COMA [None]
  - PNEUMONIA ASPIRATION [None]
  - FALL [None]
  - LOWER LIMB FRACTURE [None]
  - CONVULSION [None]
